FAERS Safety Report 5890724-1 (Version None)
Quarter: 2008Q3

REPORT INFORMATION
  Report Type: 
  Country: None (occurrence: None)
  Receive Date: 20080922
  Receipt Date: 20080922
  Transmission Date: 20090109
  Serious: Yes (Death, Life-Threatening)
  Sender: FDA-Public Use
  Company Number: None

PATIENT
  Age: 68 Year
  Sex: Male
  Weight: 54.4316 kg

DRUGS (1)
  1. HEPARIN [Suspect]

REACTIONS (9)
  - ARTERIAL THROMBOSIS LIMB [None]
  - BLOOD PRESSURE DECREASED [None]
  - DIALYSIS [None]
  - DRUG HYPERSENSITIVITY [None]
  - GASTROINTESTINAL DISORDER [None]
  - HAEMORRHAGE [None]
  - LEG AMPUTATION [None]
  - RENAL IMPAIRMENT [None]
  - THROMBOSIS [None]
